FAERS Safety Report 8774021 (Version 1)
Quarter: 2012Q4

REPORT INFORMATION
  Report Type: Report from Study
  Country: CA (occurrence: CA)
  Receive Date: 20120907
  Receipt Date: 20120907
  Transmission Date: 20130627
  Serious: No
  Sender: FDA-Public Use
  Company Number: CA-JNJFOC-20120813894

PATIENT
  Sex: Female
  Weight: 83 kg

DRUGS (1)
  1. REMICADE [Suspect]
     Indication: COLITIS ULCERATIVE
     Dosage: frequency of administration: once in 8 weeks for 52 weeks
     Route: 042
     Dates: start: 2008

REACTIONS (1)
  - Herpes zoster [Unknown]
